FAERS Safety Report 10462556 (Version 1)
Quarter: 2014Q3

REPORT INFORMATION
  Report Type: Spontaneous
  Country: US (occurrence: US)
  Receive Date: 20140918
  Receipt Date: 20140918
  Transmission Date: 20150326
  Serious: No
  Sender: FDA-Public Use
  Company Number: US-TEVA-503622USA

PATIENT
  Age: 12 Year
  Sex: Female
  Weight: 72.64 kg

DRUGS (1)
  1. QNASL [Suspect]
     Active Substance: BECLOMETHASONE DIPROPIONATE
     Indication: HYPERSENSITIVITY
     Route: 045
     Dates: start: 20140711, end: 20140814

REACTIONS (14)
  - Oral mucosal exfoliation [Recovering/Resolving]
  - Mastication disorder [Recovering/Resolving]
  - Malaise [Not Recovered/Not Resolved]
  - Sinusitis [Not Recovered/Not Resolved]
  - Dysphagia [Recovering/Resolving]
  - Dyspnoea [Not Recovered/Not Resolved]
  - Lip exfoliation [Recovering/Resolving]
  - Middle ear effusion [Not Recovered/Not Resolved]
  - Foreign body [Recovering/Resolving]
  - Neck pain [Not Recovered/Not Resolved]
  - Tongue discolouration [Recovering/Resolving]
  - Pyrexia [Not Recovered/Not Resolved]
  - Headache [Not Recovered/Not Resolved]
  - Nasal congestion [Not Recovered/Not Resolved]

NARRATIVE: CASE EVENT DATE: 20140731
